FAERS Safety Report 6979310-X (Version None)
Quarter: 2010Q3

REPORT INFORMATION
  Report Type: 
  Country: None (occurrence: None)
  Receive Date: 20100913
  Receipt Date: 20100830
  Transmission Date: 20110219
  Serious: No
  Sender: FDA-Public Use
  Company Number: IN-MYLANLABS-2010S1015787

PATIENT
  Age: 7 Year
  Sex: Male

DRUGS (3)
  1. CARBOPLATIN [Suspect]
     Indication: NEUROBLASTOMA
     Dosage: 1000 MG/M2
     Route: 065
  2. ETOPOSIDE [Suspect]
     Indication: NEUROBLASTOMA
     Dosage: 640 MG/M2 OVER 3 DAYS
     Route: 065
  3. MELPHALAN HYDROCHLORIDE [Suspect]
     Indication: NEUROBLASTOMA
     Dosage: 210 MG/M2
     Route: 065

REACTIONS (2)
  - LEUKOPENIA [None]
  - RENAL IMPAIRMENT [None]
